FAERS Safety Report 7010956-9 (Version None)
Quarter: 2010Q3

REPORT INFORMATION
  Report Type: 
  Country: None (occurrence: None)
  Receive Date: 20100922
  Receipt Date: 20100922
  Transmission Date: 20110219
  Serious: No
  Sender: FDA-Public Use
  Company Number: None

PATIENT
  Age: 72 Year
  Sex: Male
  Weight: 79.3795 kg

DRUGS (1)
  1. FINASTERIDE [Suspect]
     Indication: BENIGN PROSTATIC HYPERPLASIA

REACTIONS (6)
  - BLOOD PRESSURE INCREASED [None]
  - BLOOD TESTOSTERONE INCREASED [None]
  - ERECTILE DYSFUNCTION [None]
  - GYNAECOMASTIA [None]
  - LIBIDO DISORDER [None]
  - LOSS OF LIBIDO [None]
